FAERS Safety Report 5333840-5 (Version None)
Quarter: 2007Q2

REPORT INFORMATION
  Report Type: 
  Country: None (occurrence: None)
  Receive Date: 20070524
  Receipt Date: 20070514
  Transmission Date: 20071010
  Serious: Yes (Other)
  Sender: FDA-Public Use
  Company Number: GB-ASTRAZENECA-2007GB01029

PATIENT
  Age: 65 Year
  Sex: Female

DRUGS (5)
  1. LISINOPRIL [Suspect]
     Route: 048
  2. BENDROFLUMETHIAZIDE [Concomitant]
     Route: 048
     Dates: start: 20070321
  3. CO-CODAMOL [Concomitant]
     Route: 048
     Dates: start: 20070221
  4. NAPROXEN [Concomitant]
     Route: 048
     Dates: start: 20070221
  5. RANITIDINE [Concomitant]
     Route: 048
     Dates: start: 20070221

REACTIONS (3)
  - DYSPNOEA [None]
  - MOUTH ULCERATION [None]
  - PALPITATIONS [None]
